FAERS Safety Report 13692951 (Version 3)
Quarter: 2018Q2

REPORT INFORMATION
  Report Type: Spontaneous
  Country: US (occurrence: US)
  Receive Date: 20170627
  Receipt Date: 20180503
  Transmission Date: 20180711
  Serious: No
  Sender: FDA-Public Use
  Company Number: US-PFIZER INC-2017278079

PATIENT
  Age: 67 Year
  Sex: Female
  Weight: 47.63 kg

DRUGS (1)
  1. PREMARIN [Suspect]
     Active Substance: ESTROGENS, CONJUGATED
     Indication: URINARY TRACT INFECTION
     Dosage: UNK
     Route: 067

REACTIONS (3)
  - Nervousness [Unknown]
  - Drug ineffective for unapproved indication [Unknown]
  - Incorrect route of drug administration [Unknown]
